FAERS Safety Report 7536342-0 (Version None)
Quarter: 2011Q2

REPORT INFORMATION
  Report Type: 
  Country: None (occurrence: None)
  Receive Date: 20110609
  Receipt Date: 20110523
  Transmission Date: 20111010
  Serious: Yes (Hospitalization)
  Sender: FDA-Public Use
  Company Number: PHHO2011US09637

PATIENT
  Sex: Male

DRUGS (6)
  1. MYFORTIC [Suspect]
     Indication: RENAL TRANSPLANT
     Dosage: 1440 MG, QD
     Route: 048
     Dates: start: 20071221
  2. ASPIRIN [Concomitant]
  3. PREDNISONE [Suspect]
     Indication: RENAL TRANSPLANT
     Dosage: 5 MG, QD
     Route: 048
     Dates: start: 20061020
  4. PRAVASTATIN [Concomitant]
  5. NEORAL [Suspect]
     Indication: RENAL TRANSPLANT
     Dosage: 200 MG, QD
     Route: 048
     Dates: start: 20061103
  6. AVODART [Concomitant]

REACTIONS (2)
  - LARGE INTESTINAL ULCER [None]
  - CLOSTRIDIAL INFECTION [None]
